FAERS Safety Report 11098999 (Version 2)
Quarter: 2015Q2

REPORT INFORMATION
  Report Type: Spontaneous
  Country: BR (occurrence: BR)
  Receive Date: 20150508
  Receipt Date: 20150520
  Transmission Date: 20150821
  Serious: Yes (Life-Threatening, Other)
  Sender: FDA-Public Use
  Company Number: BR-ASTRAZENECA-2015SE40963

PATIENT
  Age: 23 Year
  Sex: Male
  Weight: 68 kg

DRUGS (16)
  1. TRILEPTAL [Suspect]
     Active Substance: OXCARBAZEPINE
     Indication: SCHIZOPHRENIA
     Route: 048
     Dates: start: 2009, end: 2009
  2. BENEFIBER (GUAR GUM) [Suspect]
     Active Substance: GUAR GUM
     Indication: CONSTIPATION
     Dosage: 1 TEASPOON/4 TIMES A DAY
     Route: 065
     Dates: start: 200908
  3. MOTILIUM [Concomitant]
     Active Substance: DOMPERIDONE
     Indication: CONSTIPATION
     Dosage: DAILY
     Route: 048
     Dates: start: 2009
  4. MUNVINOR [Concomitant]
     Indication: CONSTIPATION
     Route: 048
     Dates: start: 2009
  5. NEXIUM [Suspect]
     Active Substance: ESOMEPRAZOLE MAGNESIUM
     Indication: GASTROOESOPHAGEAL REFLUX PROPHYLAXIS
     Route: 048
     Dates: start: 2009
  6. RISPERIDONE. [Suspect]
     Active Substance: RISPERIDONE
     Indication: SCHIZOPHRENIA
     Route: 065
     Dates: start: 2009, end: 2009
  7. BENEFIBER (GUAR GUM) [Suspect]
     Active Substance: GUAR GUM
     Indication: CONSTIPATION
     Dosage: 1 TEASPOON/ 3 TIMES A DAY
     Route: 065
     Dates: start: 2009, end: 20090826
  8. ABILIFY [Suspect]
     Active Substance: ARIPIPRAZOLE
     Indication: SCHIZOPHRENIA
     Route: 065
     Dates: start: 2009, end: 2009
  9. LITIUM CARBONATE [Suspect]
     Active Substance: LITHIUM CARBONATE
     Indication: SCHIZOPHRENIA
     Route: 065
     Dates: start: 2009, end: 2009
  10. HALDOL [Suspect]
     Active Substance: HALOPERIDOL
     Indication: SCHIZOPHRENIA
     Route: 065
     Dates: start: 2009, end: 2009
  11. DIAZEPAM. [Concomitant]
     Active Substance: DIAZEPAM
     Indication: SEDATIVE THERAPY
     Route: 048
     Dates: start: 2009
  12. GEODON [Suspect]
     Active Substance: ZIPRASIDONE HYDROCHLORIDE\ZIPRASIDONE MESYLATE
     Indication: SCHIZOPHRENIA
     Route: 065
     Dates: start: 2009, end: 2009
  13. ZYPREXA [Suspect]
     Active Substance: OLANZAPINE
     Indication: SCHIZOPHRENIA
     Route: 065
     Dates: start: 2009, end: 2009
  14. LEPONEX [Suspect]
     Active Substance: CLOZAPINE
     Indication: SCHIZOPHRENIA
     Route: 048
     Dates: start: 200906, end: 201006
  15. SEROQUEL [Suspect]
     Active Substance: QUETIAPINE FUMARATE
     Indication: SCHIZOPHRENIA
     Route: 048
     Dates: start: 2009, end: 2009
  16. LEPONEX [Suspect]
     Active Substance: CLOZAPINE
     Indication: SCHIZOPHRENIA
     Dosage: 2 TABLETS BY MORNING AND 7 TABLETS AT NIGHT, AS PRESCRIBED
     Route: 048
     Dates: start: 201006

REACTIONS (10)
  - Tooth fracture [Recovered/Resolved]
  - Tardive dyskinesia [Recovering/Resolving]
  - Delusion [Recovered/Resolved]
  - Panic attack [Recovering/Resolving]
  - Drug ineffective [Unknown]
  - Anxiety [Recovering/Resolving]
  - Nausea [Recovering/Resolving]
  - Suicide attempt [Recovered/Resolved]
  - Accident [Recovered/Resolved]
  - Constipation [Recovering/Resolving]

NARRATIVE: CASE EVENT DATE: 2009
